FAERS Safety Report 7311874-9 (Version None)
Quarter: 2011Q1

REPORT INFORMATION
  Report Type: 
  Country: None (occurrence: None)
  Receive Date: 20110224
  Receipt Date: 20110215
  Transmission Date: 20110831
  Serious: Yes (Hospitalization)
  Sender: FDA-Public Use
  Company Number: DK-JNJFOC-20100402293

PATIENT
  Sex: Male
  Weight: 87.7 kg

DRUGS (7)
  1. REMICADE [Suspect]
     Indication: COLITIS ULCERATIVE
     Route: 042
  2. UNIKALK BASIC [Concomitant]
     Indication: COLITIS ULCERATIVE
     Route: 048
  3. UNSPECIFED MEDICATIONS [Concomitant]
     Indication: SLEEP DISORDER THERAPY
     Route: 048
  4. PREDNISOLONE [Concomitant]
     Indication: COLITIS ULCERATIVE
     Route: 048
  5. ADALIMUMAB [Concomitant]
     Indication: COLITIS ULCERATIVE
     Dosage: REPORTED INDICATION WAS ANTIBODIES AND ALLERGIC REACTION AGAINST INFLIXIMAB
     Route: 058
  6. AZATHIOPRINE [Concomitant]
     Indication: COLITIS ULCERATIVE
     Route: 048
  7. MESALAZINE [Concomitant]
     Indication: COLITIS ULCERATIVE
     Route: 048

REACTIONS (4)
  - COLECTOMY [None]
  - ABDOMINAL ABSCESS [None]
  - COLITIS ULCERATIVE [None]
  - PYREXIA [None]
